FAERS Safety Report 22832376 (Version 3)
Quarter: 2024Q2

REPORT INFORMATION
  Report Type: Report from Study
  Country: IT (occurrence: IT)
  Receive Date: 20230817
  Receipt Date: 20240529
  Transmission Date: 20240716
  Serious: Yes (Hospitalization, Other)
  Sender: FDA-Public Use
  Company Number: IT-ORGANON-O2308ITA000176

PATIENT
  Age: 38 Year
  Sex: Female
  Weight: 68 kg

DRUGS (3)
  1. FOLLITROPIN BETA [Suspect]
     Active Substance: FOLLITROPIN BETA
     Indication: Infertility
     Dosage: 150 UI, SC, DAILY
     Route: 058
     Dates: start: 20230512, end: 20230515
  2. GANIRELIX ACETATE [Suspect]
     Active Substance: GANIRELIX ACETATE
     Indication: Infertility
     Dosage: 0.25 MG, SC, DAILY
     Route: 058
     Dates: start: 20230510, end: 20230515
  3. CORIFOLLITROPIN ALFA [Suspect]
     Active Substance: CORIFOLLITROPIN ALFA
     Indication: Infertility
     Dosage: 150 MCG DAILY
     Route: 058
     Dates: start: 20230505, end: 20230505

REACTIONS (2)
  - Abortion spontaneous [Recovered/Resolved]
  - Abortion spontaneous incomplete [Recovered/Resolved]

NARRATIVE: CASE EVENT DATE: 20230623
